FAERS Safety Report 4658932-5 (Version None)
Quarter: 2005Q2

REPORT INFORMATION
  Report Type: 
  Country: None (occurrence: None)
  Receive Date: 20050509
  Receipt Date: 20050412
  Transmission Date: 20051028
  Serious: Yes (Hospitalization)
  Sender: FDA-Public Use
  Company Number: 04P-056-0262652-00

PATIENT
  Age: 55 Year
  Sex: Female
  Weight: 61.5 kg

DRUGS (10)
  1. HUMIRA [Suspect]
     Indication: RHEUMATOID ARTHRITIS
     Dosage: 40 MG, 1 IN 2 WK, SUBCUTANEOUS
     Route: 058
     Dates: start: 20030926, end: 20031223
  2. ETANERCEPT [Concomitant]
  3. METHOTREXATE [Concomitant]
  4. PREDNISONE TAB [Concomitant]
  5. CLONAZEPAM [Concomitant]
  6. KETOPROFEN [Concomitant]
  7. OMEPRAZOLE [Concomitant]
  8. LEKOVIT CA [Concomitant]
  9. PROPOFAN [Concomitant]
  10. AZATHIOPRINE [Concomitant]

REACTIONS (26)
  - ANTINUCLEAR ANTIBODY POSITIVE [None]
  - ASTHENIA [None]
  - BENCE JONES PROTEINURIA [None]
  - BIOPSY BONE MARROW ABNORMAL [None]
  - BLOOD IMMUNOGLOBULIN G INCREASED [None]
  - BRONCHOALVEOLAR LAVAGE ABNORMAL [None]
  - DNA ANTIBODY POSITIVE [None]
  - GAMMOPATHY [None]
  - HAEMANGIOMA OF LIVER [None]
  - INTERVERTEBRAL DISC DISORDER [None]
  - INTERVERTEBRAL DISC SPACE NARROWING [None]
  - LABORATORY TEST ABNORMAL [None]
  - LIGHT CHAIN ANALYSIS ABNORMAL [None]
  - NEPHROLITHIASIS [None]
  - NUCLEAR MAGNETIC RESONANCE IMAGING ABNORMAL [None]
  - PERICARDIAL EFFUSION [None]
  - PERICARDITIS [None]
  - PLASMA CELL DISORDER [None]
  - PLASMACYTOSIS [None]
  - PLEURAL EFFUSION [None]
  - RASH MACULAR [None]
  - RHEUMATOID ARTHRITIS [None]
  - SYNOVITIS [None]
  - URINE ANALYSIS ABNORMAL [None]
  - URINE ELECTROPHORESIS ABNORMAL [None]
  - WEIGHT DECREASED [None]
